FAERS Safety Report 9391220 (Version 2)
Quarter: 2014Q2

REPORT INFORMATION
  Report Type: Report from Study
  Country: FI (occurrence: FI)
  Receive Date: 20130709
  Receipt Date: 20140501
  Transmission Date: 20141212
  Serious: Yes (Hospitalization)
  Sender: FDA-Public Use
  Company Number: FI-009507513-1307FIN003395

PATIENT
  Age: 60 Year
  Sex: Female

DRUGS (4)
  1. TEMOZOLOMIDE [Suspect]
     Indication: REFRACTORY CANCER
     Dosage: 100 MG, QD
     Route: 048
  2. TEMOZOLOMIDE [Suspect]
     Indication: CHEMOTHERAPY
  3. GRANULOCYTE-MACROPHAGE COLONY-STIMULATING FACTOR [Suspect]
     Indication: CELL DEATH
     Dosage: UNK
  4. CYCLOPHOSPHAMIDE [Suspect]
     Indication: T-CELL DEPLETION
     Dosage: 50 MG, QD
     Route: 048

REACTIONS (1)
  - Ileus [Unknown]
